FAERS Safety Report 5688331-9 (Version None)
Quarter: 2008Q1

REPORT INFORMATION
  Report Type: 
  Country: None (occurrence: None)
  Receive Date: 20080328
  Receipt Date: 20080328
  Transmission Date: 20080703
  Serious: Yes (Disabling, Other)
  Sender: FDA-Public Use
  Company Number: None

PATIENT
  Age: 50 Year
  Sex: Female
  Weight: 60.3284 kg

DRUGS (4)
  1. TEMAZEPAM [Suspect]
     Indication: ANXIETY
     Dosage: 30MG  NOCTE  PO
     Route: 048
     Dates: start: 20070418, end: 20071112
  2. TEMAZEPAM [Suspect]
     Indication: INSOMNIA
     Dosage: 30MG  NOCTE  PO
     Route: 048
     Dates: start: 20070418, end: 20071112
  3. TEMAZEPAM [Suspect]
     Indication: TREMOR
     Dosage: 30MG  NOCTE  PO
     Route: 048
     Dates: start: 20070418, end: 20071112
  4. PAXIL [Suspect]
     Indication: DEPRESSION
     Dosage: 20MG  NOCTE  PO
     Route: 048
     Dates: start: 20070808, end: 20071110

REACTIONS (3)
  - BLOOD PRESSURE INCREASED [None]
  - TREMOR [None]
  - WEIGHT DECREASED [None]
